FAERS Safety Report 25735608 (Version 1)
Quarter: 2025Q3

REPORT INFORMATION
  Report Type: Spontaneous
  Country: US (occurrence: US)
  Receive Date: 20250828
  Receipt Date: 20250828
  Transmission Date: 20251021
  Serious: No
  Sender: Unknown Manufacturer
  Company Number: US-THERATECHNOLOGIES INC.-2025-THE-TES-000211

PATIENT

DRUGS (1)
  1. EGRIFTA SV [Suspect]
     Active Substance: TESAMORELIN ACETATE
     Indication: Lipodystrophy acquired
     Dosage: UNK, QD
     Route: 058
     Dates: start: 20250803

REACTIONS (2)
  - Injection site induration [Not Recovered/Not Resolved]
  - Injection site pain [Not Recovered/Not Resolved]

NARRATIVE: CASE EVENT DATE: 20250806
